FAERS Safety Report 8140491-6 (Version None)
Quarter: 2012Q1

REPORT INFORMATION
  Report Type: 
  Country: None (occurrence: None)
  Receive Date: 20120216
  Receipt Date: 20120208
  Transmission Date: 20120608
  Serious: Yes (Other)
  Sender: FDA-Public Use
  Company Number: US-PFIZER INC-2012034966

PATIENT
  Age: 35 Year
  Sex: Female
  Weight: 62.132 kg

DRUGS (1)
  1. CELEBREX [Suspect]
     Indication: ANTIINFLAMMATORY THERAPY
     Dosage: 200 MG, 1X/DAY
     Route: 048
     Dates: start: 20120123

REACTIONS (1)
  - MAMMOPLASTY [None]
